FAERS Safety Report 12215013 (Version 3)
Quarter: 2018Q1

REPORT INFORMATION
  Report Type: Report from Study
  Country: US (occurrence: US)
  Receive Date: 20160328
  Receipt Date: 20180326
  Transmission Date: 20180508
  Serious: Yes (Hospitalization)
  Sender: FDA-Public Use
  Company Number: US-B.I. PHARMACEUTICALS,INC./RIDGEFIELD-2015-BI-47822BP

PATIENT
  Sex: Male

DRUGS (2)
  1. COUMADIN [Concomitant]
     Active Substance: WARFARIN SODIUM
     Indication: PRODUCT USED FOR UNKNOWN INDICATION
     Route: 065
  2. OFEV [Suspect]
     Active Substance: NINTEDANIB
     Indication: IDIOPATHIC PULMONARY FIBROSIS
     Route: 048
     Dates: start: 20150708

REACTIONS (8)
  - Dyspnoea exertional [Unknown]
  - Pulmonary embolism [Unknown]
  - Dyspnoea [Unknown]
  - Myocardial infarction [Unknown]
  - Influenza [Unknown]
  - Cough [Unknown]
  - Diarrhoea [Unknown]
  - Abdominal discomfort [Unknown]
